FAERS Safety Report 11685357 (Version 1)
Quarter: 2015Q4

REPORT INFORMATION
  Report Type: Spontaneous
  Country: US (occurrence: None)
  Receive Date: 20151029
  Receipt Date: 20151029
  Transmission Date: 20160304
  Serious: Yes (Other)
  Sender: FDA-Public Use
  Company Number: None

PATIENT
  Age: 64 Year
  Sex: Male
  Weight: 83.92 kg

DRUGS (4)
  1. METAXOLONE [Suspect]
     Active Substance: METAXALONE
     Indication: MUSCLE SPASMS
     Dosage: 1 TABLET
     Route: 048
     Dates: start: 20151020, end: 20151022
  2. SIMVASTATIN. [Concomitant]
     Active Substance: SIMVASTATIN
  3. LO-DOSE ASPIRIN [Concomitant]
  4. METAMUCIL [Concomitant]
     Active Substance: PLANTAGO SEED

REACTIONS (3)
  - Swelling [None]
  - Lip swelling [None]
  - Lip blister [None]

NARRATIVE: CASE EVENT DATE: 20151022
